FAERS Safety Report 5129355-X (Version None)
Quarter: 2006Q4

REPORT INFORMATION
  Report Type: 
  Country: None (occurrence: None)
  Receive Date: 20061018
  Receipt Date: 20061010
  Transmission Date: 20070319
  Serious: Yes (Other)
  Sender: FDA-Public Use
  Company Number: FR-AVENTIS-200613548FR

PATIENT

DRUGS (1)
  1. LOVENOX [Suspect]
     Route: 058

REACTIONS (1)
  - THROMBOCYTHAEMIA [None]
